FAERS Safety Report 6629361-X (Version None)
Quarter: 2010Q1

REPORT INFORMATION
  Report Type: 
  Country: None (occurrence: None)
  Receive Date: 20100311
  Receipt Date: 20090713
  Transmission Date: 20100710
  Serious: No
  Sender: FDA-Public Use
  Company Number: US-BIOGENIDEC-2009BI021569

PATIENT
  Sex: Female

DRUGS (1)
  1. AVONEX [Suspect]
     Indication: MULTIPLE SCLEROSIS
     Route: 030
     Dates: start: 20071008

REACTIONS (5)
  - FALL [None]
  - LOCAL SWELLING [None]
  - MEMORY IMPAIRMENT [None]
  - PAIN [None]
  - PERIORBITAL HAEMATOMA [None]
